FAERS Safety Report 7225941-1 (Version None)
Quarter: 2011Q1

REPORT INFORMATION
  Report Type: 
  Country: None (occurrence: None)
  Receive Date: 20110113
  Receipt Date: 20110107
  Transmission Date: 20110831
  Serious: Yes (Other)
  Sender: FDA-Public Use
  Company Number: GR-PFIZER INC-2011005367

PATIENT
  Age: 8 Year
  Sex: Female

DRUGS (1)
  1. IBUPROFEN [Suspect]
     Dosage: 35 MG/KG/24H (4 TIMES A DAY)

REACTIONS (2)
  - CONDITION AGGRAVATED [None]
  - JUVENILE ARTHRITIS [None]
